FAERS Safety Report 20758306 (Version 8)
Quarter: 2023Q1

REPORT INFORMATION
  Report Type: Report from Study
  Country: DE (occurrence: DE)
  Receive Date: 20220427
  Receipt Date: 20230317
  Transmission Date: 20230418
  Serious: Yes (Other)
  Sender: FDA-Public Use
  Company Number: DE-002147023-NVSC2020DE293864

PATIENT
  Sex: Female
  Weight: 65 kg

DRUGS (6)
  1. LETROZOLE [Suspect]
     Active Substance: LETROZOLE
     Indication: Breast cancer metastatic
     Dosage: 2.5 MG, QD (DAILY DOSE)
     Route: 048
     Dates: start: 20201007
  2. KISQALI [Suspect]
     Active Substance: RIBOCICLIB
     Indication: Breast cancer metastatic
     Dosage: 600MG,QD (SCHEME 21D INTAKE, 7D PAUSE)
     Route: 048
     Dates: start: 20201007, end: 20220828
  3. KISQALI [Suspect]
     Active Substance: RIBOCICLIB
     Dosage: 600MG,QD (SCHEME 21D INTAKE, 7D PAUSE)
     Route: 048
     Dates: start: 20221006, end: 20221102
  4. KISQALI [Suspect]
     Active Substance: RIBOCICLIB
     Dosage: 600MG,QD (SCHEME 21D INTAKE, 7D PAUSE)
     Route: 048
     Dates: start: 20221109, end: 20221129
  5. KISQALI [Suspect]
     Active Substance: RIBOCICLIB
     Dosage: 600MG,QD (SCHEME 21D INTAKE, 7D PAUSE)
     Route: 048
     Dates: start: 20221205, end: 20221227
  6. KISQALI [Suspect]
     Active Substance: RIBOCICLIB
     Dosage: 600MG,QD (SCHEME 21D INTAKE, 7D PAUSE)
     Route: 048
     Dates: start: 20230104

REACTIONS (7)
  - Thrombocytopenia [Not Recovered/Not Resolved]
  - Metastasis [Recovering/Resolving]
  - Neutropenia [Recovered/Resolved]
  - Leukopenia [Recovered/Resolved]
  - Bone pain [Recovering/Resolving]
  - Osteoarthritis [Unknown]
  - Anaemia [Not Recovered/Not Resolved]

NARRATIVE: CASE EVENT DATE: 20201021
